FAERS Safety Report 10549078 (Version 1)
Quarter: 2014Q4

REPORT INFORMATION
  Report Type: Spontaneous
  Country: US (occurrence: None)
  Receive Date: 20141027
  Receipt Date: 20141027
  Transmission Date: 20150529
  Serious: Yes (Life-Threatening, Hospitalization)
  Sender: FDA-Public Use
  Company Number: None

PATIENT
  Age: 72 Year
  Sex: Female

DRUGS (4)
  1. PAXIL [Concomitant]
     Active Substance: PAROXETINE HYDROCHLORIDE
  2. METHYLENE BLUE. [Suspect]
     Active Substance: METHYLENE BLUE
     Dates: start: 20141016, end: 20141016
  3. ZOFRAN [Concomitant]
     Active Substance: ONDANSETRON HYDROCHLORIDE
  4. FENTANYL. [Concomitant]
     Active Substance: FENTANYL

REACTIONS (6)
  - Confusional state [None]
  - Serotonin syndrome [None]
  - Respiratory disorder [None]
  - Restlessness [None]
  - Cardiac disorder [None]
  - Nervous system disorder [None]

NARRATIVE: CASE EVENT DATE: 20141016
